FAERS Safety Report 18491711 (Version 4)
Quarter: 2021Q1

REPORT INFORMATION
  Report Type: Spontaneous
  Country: FR (occurrence: FR)
  Receive Date: 20201111
  Receipt Date: 20210215
  Transmission Date: 20210419
  Serious: Yes (Hospitalization, Other)
  Sender: FDA-Public Use
  Company Number: FR-MYLANLABS-2020M1093620

PATIENT
  Age: 30 Year
  Sex: Male

DRUGS (2)
  1. PARACETAMOL [Suspect]
     Active Substance: ACETAMINOPHEN
     Indication: ALCOHOLIC HANGOVER
     Dosage: TOOK MORE THAN 2 BOXES OF PARACETAMOL IN LESS THAN 12 HOURS
     Route: 065
     Dates: start: 20200621
  2. PARACETAMOL [Interacting]
     Active Substance: ACETAMINOPHEN
     Indication: MALAISE

REACTIONS (6)
  - Hepatitis acute [Recovering/Resolving]
  - Toxicity to various agents [Recovering/Resolving]
  - Overdose [Recovering/Resolving]
  - Alcohol interaction [Recovering/Resolving]
  - Accidental overdose [Recovering/Resolving]
  - Medication error [Unknown]

NARRATIVE: CASE EVENT DATE: 20200621
